FAERS Safety Report 9310664 (Version 1)
Quarter: 2013Q2

REPORT INFORMATION
  Report Type: Spontaneous
  Country: GB (occurrence: GB)
  Receive Date: 20130527
  Receipt Date: 20130527
  Transmission Date: 20140414
  Serious: Yes (Other)
  Sender: FDA-Public Use
  Company Number: GB-JNJFOC-20130512172

PATIENT
  Sex: Female

DRUGS (2)
  1. CALPOL [Suspect]
     Indication: COUGH
     Route: 065
  2. CALPOL [Suspect]
     Indication: OROPHARYNGEAL PAIN
     Route: 065

REACTIONS (7)
  - Hallucination [Unknown]
  - Body temperature increased [Unknown]
  - Panic reaction [Unknown]
  - Chest pain [Unknown]
  - Drug ineffective [Unknown]
  - Pain in extremity [Unknown]
  - Somnolence [Unknown]
